FAERS Safety Report 16117706 (Version 2)
Quarter: 2019Q2

REPORT INFORMATION
  Report Type: Spontaneous
  Country: CZ (occurrence: CZ)
  Receive Date: 20190326
  Receipt Date: 20190603
  Transmission Date: 20190711
  Serious: Yes (Hospitalization, Other)
  Sender: FDA-Public Use
  Company Number: CZ-KADMON PHARMACEUTICALS, LLC-KAD201903-000203

PATIENT
  Age: 75 Year
  Sex: Male

DRUGS (14)
  1. RIBAVIRIN. [Suspect]
     Active Substance: RIBAVIRIN
     Dosage: 600 MG
     Dates: start: 20161215
  2. REBETOL [Suspect]
     Active Substance: RIBAVIRIN
     Dates: start: 20161222, end: 201612
  3. TAMSULOSIN [Concomitant]
     Active Substance: TAMSULOSIN
  4. REBETOL [Suspect]
     Active Substance: RIBAVIRIN
     Dosage: 600 MG
     Dates: end: 20161215
  5. MIRZATEN [Concomitant]
     Active Substance: MIRTAZAPINE
  6. DETRALEX [Concomitant]
     Active Substance: DIOSMIN\HESPERIDIN
  7. IMMUNATE STIM PLUS [Concomitant]
     Active Substance: ANTIHEMOPHILIC FACTOR HUMAN
  8. RIBAVIRIN. [Suspect]
     Active Substance: RIBAVIRIN
  9. REBETOL [Suspect]
     Active Substance: RIBAVIRIN
     Indication: CHRONIC HEPATITIS C
     Dosage: 1200 MG
     Dates: start: 20161124
  10. RIBAVIRIN. [Suspect]
     Active Substance: RIBAVIRIN
     Dates: start: 20161222
  11. HARVONI [Suspect]
     Active Substance: LEDIPASVIR\SOFOSBUVIR
     Indication: CHRONIC HEPATITIS C
     Dates: start: 20161124, end: 20170105
  12. FINPROS [Concomitant]
     Active Substance: FINASTERIDE
  13. RIBAVIRIN. [Suspect]
     Active Substance: RIBAVIRIN
     Indication: CHRONIC HEPATITIS C
     Dosage: 1200 MG
     Dates: start: 20161124
  14. HELICID [Concomitant]
     Active Substance: OMEPRAZOLE

REACTIONS (10)
  - Behaviour disorder [Recovered/Resolved]
  - Anaemia [Recovered/Resolved]
  - Confusional state [Recovered/Resolved]
  - Headache [Recovered/Resolved]
  - Dementia [Unknown]
  - Feeling abnormal [Recovered/Resolved]
  - Mental disorder [Unknown]
  - Suicidal ideation [Recovered/Resolved]
  - Hallucination [Unknown]
  - Fatigue [Unknown]

NARRATIVE: CASE EVENT DATE: 20161209
